FAERS Safety Report 7507898-9 (Version None)
Quarter: 2011Q2

REPORT INFORMATION
  Report Type: 
  Country: None (occurrence: None)
  Receive Date: 20110527
  Receipt Date: 20110519
  Transmission Date: 20111010
  Serious: No
  Sender: FDA-Public Use
  Company Number: US-BIOGENIDEC-2011BI019148

PATIENT
  Sex: Female

DRUGS (3)
  1. EFFEXOR [Concomitant]
     Indication: DEPRESSION
  2. AMPYRA [Concomitant]
     Indication: GAIT DISTURBANCE
     Dates: start: 20100101
  3. AVONEX [Suspect]
     Indication: MULTIPLE SCLEROSIS
     Route: 030
     Dates: start: 20080301

REACTIONS (4)
  - CONFUSIONAL STATE [None]
  - POOR QUALITY SLEEP [None]
  - ARTHRITIS [None]
  - MALAISE [None]
